FAERS Safety Report 4722005-3 (Version None)
Quarter: 2005Q3

REPORT INFORMATION
  Report Type: 
  Country: None (occurrence: None)
  Receive Date: 20050722
  Receipt Date: 20050601
  Transmission Date: 20060218
  Serious: Yes (Death)
  Sender: FDA-Public Use
  Company Number: US-NOVOPROD-244543

PATIENT
  Age: 74 Year
  Sex: Male

DRUGS (2)
  1. NOVOSEVEN [Suspect]
     Indication: AORTIC ANEURYSM RUPTURE
     Dosage: 7200 UG, SINGLE
     Route: 042
     Dates: start: 20050529, end: 20050529
  2. NOVOSEVEN [Suspect]
     Dosage: 7200 UG, SINGLE
     Route: 042
     Dates: start: 20050529, end: 20050529

REACTIONS (1)
  - THERAPEUTIC RESPONSE DECREASED [None]
